FAERS Safety Report 6021423-3 (Version None)
Quarter: 2008Q4

REPORT INFORMATION
  Report Type: 
  Country: None (occurrence: None)
  Receive Date: 20081223
  Receipt Date: 20071108
  Transmission Date: 20090506
  Serious: Yes (Hospitalization)
  Sender: FDA-Public Use
  Company Number: 530442

PATIENT
  Age: 64 Year
  Sex: Male

DRUGS (7)
  1. TICLID [Suspect]
     Indication: STENT PLACEMENT
     Dosage: 250 MG 2 PER DAY ORAL
     Route: 048
     Dates: start: 20050101
  2. HYDROCHLOROTHIAZIDE [Concomitant]
  3. COZAAR [Concomitant]
  4. DILTIAZEM XR (DILTIAZEM) [Concomitant]
  5. KLONOPIN [Concomitant]
  6. UNSPECIFIED MEDICATION (GENERIC UNKNOWN) [Concomitant]
  7. LIPITOR [Concomitant]

REACTIONS (1)
  - THROMBOCYTOPENIA [None]
